FAERS Safety Report 26047942 (Version 1)
Quarter: 2025Q4

REPORT INFORMATION
  Report Type: Spontaneous
  Country: JP (occurrence: JP)
  Receive Date: 20251114
  Receipt Date: 20251114
  Transmission Date: 20260119
  Serious: Yes (Other)
  Sender: TAKEDA
  Company Number: JP-TAKEDA-2025TUS099277

PATIENT
  Age: 51 Year
  Sex: Female

DRUGS (12)
  1. ANAGRELIDE [Suspect]
     Active Substance: ANAGRELIDE
     Indication: Essential thrombocythaemia
     Dosage: 1 MILLIGRAM, QD
  2. ASPIRIN [Concomitant]
     Active Substance: ASPIRIN
     Dosage: 100 MILLIGRAM, QD
  3. PRASUGREL [Concomitant]
     Active Substance: PRASUGREL
     Dosage: 3.75 MILLIGRAM, QD
  4. ROSUVASTATIN [Concomitant]
     Active Substance: ROSUVASTATIN
     Dosage: 10 MILLIGRAM, QD
  5. EZETIMIBE [Concomitant]
     Active Substance: EZETIMIBE
     Dosage: 10 MILLIGRAM, QD
  6. BENIDIPINE [Concomitant]
     Active Substance: BENIDIPINE
     Dosage: 8 MILLIGRAM, QD
  7. ACETYLCHOLINE CHLORIDE [Concomitant]
     Active Substance: ACETYLCHOLINE CHLORIDE
     Dosage: 100 MICROGRAM
  8. ISOSORBIDE MONONITRATE [Concomitant]
     Active Substance: ISOSORBIDE MONONITRATE
     Dosage: 40 MILLIGRAM, QD
  9. NITROGLYCERIN [Concomitant]
     Active Substance: NITROGLYCERIN
     Dosage: UNK
  10. DILTIAZEM [Concomitant]
     Active Substance: DILTIAZEM
     Dosage: 100 MILLIGRAM, QD
  11. DILTIAZEM [Concomitant]
     Active Substance: DILTIAZEM
     Dosage: 200 MILLIGRAM, QD
  12. NICORANDIL [Concomitant]
     Active Substance: NICORANDIL
     Dosage: 15 MILLIGRAM, QD

REACTIONS (2)
  - Acute coronary syndrome [Unknown]
  - Prinzmetal angina [Unknown]
